FAERS Safety Report 4386225-2 (Version None)
Quarter: 2004Q2

REPORT INFORMATION
  Report Type: 
  Country: None (occurrence: None)
  Receive Date: 20040628
  Receipt Date: 20040628
  Transmission Date: 20050107
  Serious: Yes (Hospitalization)
  Sender: FDA-Public Use
  Company Number: None

PATIENT
  Age: 86 Year
  Sex: Male
  Weight: 92 kg

DRUGS (9)
  1. XIGRIS [Suspect]
     Indication: SEPSIS
     Dosage: 25MG IV Q 12 H
     Route: 042
     Dates: start: 20040410, end: 20040414
  2. ASPIRIN [Concomitant]
  3. FUROSEMIDE [Concomitant]
  4. KCL TAB [Concomitant]
  5. HYDRALAZINE [Concomitant]
  6. ISOSORBIDE DINITRATE [Concomitant]
  7. OMEPRAZOLE [Concomitant]
  8. METOPROLOL [Concomitant]
  9. ALBUTEROL [Concomitant]

REACTIONS (1)
  - RESPIRATORY TRACT HAEMORRHAGE [None]
